FAERS Safety Report 11582541 (Version 1)
Quarter: 2015Q4

REPORT INFORMATION
  Report Type: Spontaneous
  Country: US (occurrence: US)
  Receive Date: 20151001
  Receipt Date: 20151001
  Transmission Date: 20160304
  Serious: No
  Sender: FDA-Public Use
  Company Number: US-ROCHE-685192

PATIENT
  Age: 60 Year
  Sex: Male
  Weight: 87.5 kg

DRUGS (2)
  1. PEGASYS [Suspect]
     Active Substance: PEGINTERFERON ALFA-2A
     Indication: HEPATITIS C
     Dosage: FORM: PRE-FILLED SYRINGE
     Route: 065
     Dates: start: 20100122, end: 20100302
  2. RIBAVIRIN. [Concomitant]
     Active Substance: RIBAVIRIN
     Indication: HEPATITIS C
     Dosage: IN DIVIDED DOSES, 600 MG IN MORNING AND EVENING
     Route: 048
     Dates: start: 20100122, end: 20100302

REACTIONS (6)
  - Hypophagia [Not Recovered/Not Resolved]
  - No therapeutic response [Unknown]
  - Mouth ulceration [Recovered/Resolved]
  - Influenza like illness [Not Recovered/Not Resolved]
  - Stomatitis [Not Recovered/Not Resolved]
  - Oral pain [Not Recovered/Not Resolved]

NARRATIVE: CASE EVENT DATE: 20100122
